FAERS Safety Report 17093081 (Version 3)
Quarter: 2019Q4

REPORT INFORMATION
  Report Type: Spontaneous
  Country: US (occurrence: US)
  Receive Date: 20191129
  Receipt Date: 20191217
  Transmission Date: 20200122
  Serious: Yes (Other)
  Sender: FDA-Public Use
  Company Number: US-B.I. PHARMACEUTICALS,INC./RIDGEFIELD-2019-US-115137

PATIENT
  Sex: Male

DRUGS (1)
  1. JARDIANCE [Suspect]
     Active Substance: EMPAGLIFLOZIN
     Indication: PRODUCT USED FOR UNKNOWN INDICATION
     Route: 065
     Dates: start: 2016

REACTIONS (5)
  - Regurgitation [Unknown]
  - Aortic stenosis [Unknown]
  - Myocardial infarction [Unknown]
  - Glycosylated haemoglobin abnormal [Not Recovered/Not Resolved]
  - Aortic valve disease [Not Recovered/Not Resolved]
